FAERS Safety Report 5473022-X (Version None)
Quarter: 2007Q4

REPORT INFORMATION
  Report Type: 
  Country: None (occurrence: None)
  Receive Date: 20071001
  Receipt Date: 20070226
  Transmission Date: 20080405
  Serious: No
  Sender: FDA-Public Use
  Company Number: US-ASTRAZENECA-2007UW03677

PATIENT
  Age: 73 Year
  Sex: Female
  Weight: 73.5 kg

DRUGS (3)
  1. ARIMIDEX [Suspect]
     Indication: BREAST CANCER FEMALE
     Route: 048
     Dates: start: 20061101
  2. DIOVAN [Concomitant]
  3. ANTIBIOTIC THERAPY [Concomitant]

REACTIONS (3)
  - AGEUSIA [None]
  - ARTHRALGIA [None]
  - HOT FLUSH [None]
